FAERS Safety Report 8321299-5 (Version None)
Quarter: 2012Q2

REPORT INFORMATION
  Report Type: 
  Country: None (occurrence: None)
  Receive Date: 20120430
  Receipt Date: 20120420
  Transmission Date: 20120825
  Serious: Yes (Other)
  Sender: FDA-Public Use
  Company Number: US-CELGENEUS-163-21880-12042438

PATIENT
  Sex: Male
  Weight: 82.1 kg

DRUGS (13)
  1. REVLIMID [Suspect]
     Dosage: 15 MILLIGRAM
     Route: 048
     Dates: start: 20120301, end: 20120420
  2. PREDNISONE [Concomitant]
     Route: 065
  3. VITAMIN C [Concomitant]
     Route: 065
  4. ATIVAN [Concomitant]
     Route: 065
  5. IBUPROFEN [Concomitant]
     Route: 065
  6. DECADRON [Concomitant]
     Route: 065
  7. FISH OIL [Concomitant]
     Route: 065
  8. IRON DEXTRAN [Concomitant]
     Route: 065
  9. PRILOSEC [Concomitant]
     Route: 065
  10. REVLIMID [Suspect]
     Indication: MULTIPLE MYELOMA
     Dosage: 25 MILLIGRAM
     Route: 048
     Dates: start: 20120210
  11. VITAMIN E [Concomitant]
     Route: 065
  12. ASPIRIN [Concomitant]
     Route: 065
  13. CALCIUM [Concomitant]
     Route: 065

REACTIONS (1)
  - CARBON MONOXIDE DIFFUSING CAPACITY DECREASED [None]
